FAERS Safety Report 9603399 (Version 1)
Quarter: 2013Q4

REPORT INFORMATION
  Report Type: Spontaneous
  Country: US (occurrence: US)
  Receive Date: 20131007
  Receipt Date: 20131007
  Transmission Date: 20140711
  Serious: No
  Sender: FDA-Public Use
  Company Number: US-009507513-1310USA002661

PATIENT
  Sex: 0
  Weight: 64.4 kg

DRUGS (1)
  1. NEXPLANON [Suspect]
     Dosage: 1 ROD EVERY 3 YEARS
     Route: 059
     Dates: start: 20130909, end: 20130909

REACTIONS (3)
  - Device difficult to use [Unknown]
  - Product packaging issue [Unknown]
  - No adverse event [Unknown]
